FAERS Safety Report 23943900 (Version 6)
Quarter: 2024Q3

REPORT INFORMATION
  Report Type: Report from Study
  Country: US (occurrence: US)
  Receive Date: 20240606
  Receipt Date: 20240712
  Transmission Date: 20241017
  Serious: Yes (Other)
  Sender: ROCHE
  Company Number: US-ROCHE-3575029

PATIENT

DRUGS (9)
  1. XOLAIR PFS [Suspect]
     Active Substance: OMALIZUMAB
     Indication: Mast cell activation syndrome
     Route: 065
  2. XOLAIR PFS [Suspect]
     Active Substance: OMALIZUMAB
  3. CETIRIZINE [Concomitant]
     Active Substance: CETIRIZINE HYDROCHLORIDE
  4. FAMOTIDINE [Concomitant]
     Active Substance: FAMOTIDINE
  5. SINGULAIR [Concomitant]
     Active Substance: MONTELUKAST SODIUM
  6. SYMBICORT [Concomitant]
     Active Substance: BUDESONIDE\FORMOTEROL FUMARATE DIHYDRATE
  7. AIRSUPRA [Concomitant]
     Active Substance: ALBUTEROL SULFATE\BUDESONIDE
  8. FASENRA [Concomitant]
     Active Substance: BENRALIZUMAB
  9. CROMOLYN SODIUM [Concomitant]
     Active Substance: CROMOLYN SODIUM

REACTIONS (13)
  - Anaphylactic reaction [Recovered/Resolved]
  - Mast cell activation syndrome [Unknown]
  - Swelling [Unknown]
  - Vomiting [Unknown]
  - Dyspnoea [Unknown]
  - Gastrointestinal disorder [Unknown]
  - Flushing [Unknown]
  - Chest discomfort [Unknown]
  - Throat tightness [Unknown]
  - Dizziness [Unknown]
  - Nausea [Unknown]
  - Urticaria [Unknown]
  - Bone pain [Unknown]
